FAERS Safety Report 6113574-X (Version None)
Quarter: 2009Q1

REPORT INFORMATION
  Report Type: 
  Country: None (occurrence: None)
  Receive Date: 20090312
  Receipt Date: 20040211
  Transmission Date: 20090719
  Serious: No
  Sender: FDA-Public Use
  Company Number: US-ABBOTT-08P-163-0458122-00

PATIENT
  Age: 3 Year

DRUGS (2)
  1. DEPAKOTE [Suspect]
     Indication: CONVULSION
  2. PHENYTOIN [Concomitant]
     Indication: CONVULSION

REACTIONS (1)
  - CONVULSION [None]
